FAERS Safety Report 16739511 (Version 1)
Quarter: 2019Q3

REPORT INFORMATION
  Report Type: Spontaneous
  Country: US (occurrence: US)
  Receive Date: 20190826
  Receipt Date: 20190826
  Transmission Date: 20191005
  Serious: Yes (Life-Threatening, Hospitalization)
  Sender: FDA-Public Use
  Company Number: US-EMCURE PHARMACEUTICALS LTD-2019-EPL-0565

PATIENT
  Age: 50 Year
  Sex: Female
  Weight: 30 kg

DRUGS (2)
  1. METFORMIN [Suspect]
     Active Substance: METFORMIN HYDROCHLORIDE
     Indication: MOOD ALTERED
  2. METFORMIN [Suspect]
     Active Substance: METFORMIN HYDROCHLORIDE
     Indication: WEIGHT DECREASED
     Dosage: 2 TABLETS OF 850 MILLIGRAM, SEVERAL TIMES A DAY
     Route: 048

REACTIONS (5)
  - Acute kidney injury [Unknown]
  - Drug abuse [Unknown]
  - Drug level increased [Unknown]
  - Renal tubular necrosis [Unknown]
  - Lactic acidosis [Recovering/Resolving]
